FAERS Safety Report 16429043 (Version 2)
Quarter: 2020Q4

REPORT INFORMATION
  Report Type: Other
  Country: CA (occurrence: CA)
  Receive Date: 20190614
  Receipt Date: 20201121
  Transmission Date: 20210113
  Serious: Yes (Other)
  Sender: FDA-Public Use
  Company Number: CA-ROCHE-2330365

PATIENT
  Sex: Female

DRUGS (2)
  1. OCREVUS [Suspect]
     Active Substance: OCRELIZUMAB
     Indication: RELAPSING-REMITTING MULTIPLE SCLEROSIS
     Dosage: 300 MG AT DAY 0 AND 14, THEN 600 MG EVERY 6 MONTH
     Route: 042
     Dates: start: 20180522
  2. OCREVUS [Suspect]
     Active Substance: OCRELIZUMAB
     Route: 042

REACTIONS (10)
  - Infection [Unknown]
  - Body temperature decreased [Unknown]
  - Urinary retention [Recovered/Resolved]
  - Feeling cold [Unknown]
  - Hypotension [Unknown]
  - Malaise [Unknown]
  - Vomiting [Recovered/Resolved]
  - Hypophagia [Unknown]
  - Pallor [Unknown]
  - Nausea [Recovered/Resolved]
